FAERS Safety Report 19089530 (Version 4)
Quarter: 2022Q2

REPORT INFORMATION
  Report Type: Report from Study
  Country: UG (occurrence: UG)
  Receive Date: 20210403
  Receipt Date: 20220606
  Transmission Date: 20220721
  Serious: Yes (Hospitalization, Other)
  Sender: FDA-Public Use
  Company Number: UG-CIPLA LTD.-2021UG02483

PATIENT

DRUGS (4)
  1. LOPINAVIR\RITONAVIR [Suspect]
     Active Substance: LOPINAVIR\RITONAVIR
     Indication: HIV infection
     Dosage: 8 DOSAGE FORMS, (160MG/40MG BID DAILY)
     Route: 048
     Dates: start: 20170823
  2. LAMIVUDINE\ZIDOVUDINE [Suspect]
     Active Substance: LAMIVUDINE\ZIDOVUDINE
     Indication: HIV infection
     Dosage: 4 DOSAGE FORMS (120MG/60MG BID DAILY)
     Route: 048
     Dates: start: 20170823
  3. ABACAVIR\LAMIVUDINE [Suspect]
     Active Substance: ABACAVIR\LAMIVUDINE
     Indication: HIV infection
     Dosage: UNK, BID
     Route: 048
  4. BACTRIM [Concomitant]
     Active Substance: SULFAMETHOXAZOLE\TRIMETHOPRIM
     Indication: Prophylaxis
     Dosage: UNK
     Route: 065
     Dates: start: 20160707

REACTIONS (7)
  - Pneumonia [Recovered/Resolved]
  - Anaemia [Recovered/Resolved]
  - Respiratory tract infection [Recovered/Resolved]
  - Cough [Recovered/Resolved]
  - Oral herpes [Recovered/Resolved]
  - Oral candidiasis [Recovered/Resolved]
  - Dermatitis [Recovered/Resolved with Sequelae]

NARRATIVE: CASE EVENT DATE: 20170101
